FAERS Safety Report 4730308-1 (Version None)
Quarter: 2005Q3

REPORT INFORMATION
  Report Type: 
  Country: None (occurrence: None)
  Receive Date: 20050728
  Receipt Date: 20050722
  Transmission Date: 20060218
  Serious: Yes (Death)
  Sender: FDA-Public Use
  Company Number: 200512269GDS

PATIENT
  Age: 77 Year
  Sex: Male
  Weight: 60 kg

DRUGS (5)
  1. ADIRO 300 (ACETYLSALICYLIC ACID) [Suspect]
     Dosage: 300 MG, TOTALY DAILY, ORAL
     Route: 048
     Dates: start: 20050113, end: 20050206
  2. EUTIROX [Concomitant]
  3. HYDROCHLOROTHIAZIDE [Concomitant]
  4. SEROQUEL [Concomitant]
  5. SIMVASTATIN [Concomitant]

REACTIONS (1)
  - CEREBRAL HAEMORRHAGE [None]
